FAERS Safety Report 6413066-4 (Version None)
Quarter: 2009Q4

REPORT INFORMATION
  Report Type: 
  Country: None (occurrence: None)
  Receive Date: 20091022
  Receipt Date: 20091022
  Transmission Date: 20100525
  Serious: Yes (Other)
  Sender: FDA-Public Use
  Company Number: None

PATIENT
  Sex: Male
  Weight: 170 kg

DRUGS (2)
  1. VIVAGLOBIN [Suspect]
     Indication: IMMUNE SYSTEM DISORDER
     Dosage: 125ML Q 2 WKS SUBCUTANEOUS
     Route: 058
  2. VIVAGLOBIN [Suspect]

REACTIONS (4)
  - BACK PAIN [None]
  - INFUSION RELATED REACTION [None]
  - LETHARGY [None]
  - PAIN IN EXTREMITY [None]
